FAERS Safety Report 7538930-4 (Version None)
Quarter: 2011Q2

REPORT INFORMATION
  Report Type: 
  Country: None (occurrence: None)
  Receive Date: 20110610
  Receipt Date: 20080603
  Transmission Date: 20111010
  Serious: Yes (Other)
  Sender: FDA-Public Use
  Company Number: US-BAYER-200824856NA

PATIENT
  Sex: Female

DRUGS (24)
  1. MAGNEVIST [Suspect]
     Dosage: 20 ML, ONCE
     Dates: start: 20060517, end: 20060517
  2. HUMALOG [Concomitant]
  3. PROCRIT [Concomitant]
  4. PROHANCE [Suspect]
     Indication: NUCLEAR MAGNETIC RESONANCE IMAGING
  5. NORVASC [Concomitant]
  6. PLAVIX [Concomitant]
  7. HECTOROL [Concomitant]
  8. NORCO [Concomitant]
  9. REGLAN [Concomitant]
  10. DILAUDID [Concomitant]
  11. NEURONTIN [Concomitant]
  12. OMNISCAN [Suspect]
     Indication: NUCLEAR MAGNETIC RESONANCE IMAGING
  13. MULTIHANCE [Suspect]
     Indication: NUCLEAR MAGNETIC RESONANCE IMAGING
  14. METOPROLOL SUCCINATE [Concomitant]
  15. AVAPRO [Concomitant]
  16. RENVELA [Concomitant]
  17. GADOLINIUM IN UNSPECIFIED DRUG [Suspect]
     Dosage: UNK
     Route: 042
     Dates: start: 20030702, end: 20030702
  18. MAGNEVIST [Suspect]
     Dosage: 20 ML, ONCE
     Dates: start: 20060901, end: 20060901
  19. LANTUS [Concomitant]
  20. MAGNEVIST [Suspect]
     Indication: NUCLEAR MAGNETIC RESONANCE IMAGING
     Dosage: UNK
     Dates: start: 20010614, end: 20010614
  21. OPTIMARK [Suspect]
     Indication: NUCLEAR MAGNETIC RESONANCE IMAGING
  22. AMIODARONE HCL [Concomitant]
  23. MAGNEVIST [Suspect]
     Dosage: 60 ML, ONCE
     Dates: start: 20060907, end: 20060907
  24. IMDUR [Concomitant]

REACTIONS (23)
  - HYPOAESTHESIA [None]
  - NEPHROGENIC SYSTEMIC FIBROSIS [None]
  - SKIN INDURATION [None]
  - GENERAL PHYSICAL HEALTH DETERIORATION [None]
  - MOBILITY DECREASED [None]
  - SKIN HYPERTROPHY [None]
  - PEAU D'ORANGE [None]
  - JOINT RANGE OF MOTION DECREASED [None]
  - FIBROSIS [None]
  - ANXIETY [None]
  - PAIN OF SKIN [None]
  - SKIN DISCOLOURATION [None]
  - OEDEMA PERIPHERAL [None]
  - SKIN FIBROSIS [None]
  - MUSCLE CONTRACTURE [None]
  - SKIN SWELLING [None]
  - JOINT CONTRACTURE [None]
  - INJURY [None]
  - SCAR [None]
  - EMOTIONAL DISTRESS [None]
  - PAIN [None]
  - PRURITUS [None]
  - MUSCULAR WEAKNESS [None]
